FAERS Safety Report 12640864 (Version 1)
Quarter: 2016Q3

REPORT INFORMATION
  Report Type: Spontaneous
  Country: US (occurrence: US)
  Receive Date: 20160810
  Receipt Date: 20160810
  Transmission Date: 20161109
  Serious: No
  Sender: FDA-Public Use
  Company Number: US-BEH-2016072100

PATIENT
  Sex: Female
  Weight: 74.83 kg

DRUGS (17)
  1. CALCIUM [Concomitant]
     Active Substance: CALCIUM
  2. LISINOPRIL. [Concomitant]
     Active Substance: LISINOPRIL
  3. DEXILANT [Concomitant]
     Active Substance: DEXLANSOPRAZOLE
  4. AMLODIPINE [Concomitant]
     Active Substance: AMLODIPINE BESYLATE
  5. PROAIR HFA [Concomitant]
     Active Substance: ALBUTEROL SULFATE
  6. ADVIL (MEFENAMIC ACID) [Concomitant]
     Active Substance: MEFENAMIC ACID
  7. MULTIVIT                           /07504101/ [Concomitant]
  8. METFORMIN [Concomitant]
     Active Substance: METFORMIN HYDROCHLORIDE
  9. JANUVIA [Concomitant]
     Active Substance: SITAGLIPTIN PHOSPHATE
  10. LORATADINE. [Concomitant]
     Active Substance: LORATADINE
  11. HIZENTRA [Suspect]
     Active Substance: HUMAN IMMUNOGLOBULIN G
     Indication: IMMUNODEFICIENCY COMMON VARIABLE
     Dosage: 15 G, QOW
     Route: 065
     Dates: start: 20140515
  12. GLIMEPIRIDE. [Concomitant]
     Active Substance: GLIMEPIRIDE
  13. ACETAMINOPHEN. [Concomitant]
     Active Substance: ACETAMINOPHEN
  14. DIPHENHYDRAMINE. [Concomitant]
     Active Substance: DIPHENHYDRAMINE
  15. EPIPEN [Concomitant]
     Active Substance: EPINEPHRINE
  16. ASPIRIN. [Concomitant]
     Active Substance: ASPIRIN
  17. DULERA [Concomitant]
     Active Substance: FORMOTEROL FUMARATE DIHYDRATE\MOMETASONE FUROATE

REACTIONS (1)
  - Administration site mass [Unknown]
